FAERS Safety Report 23190792 (Version 2)
Quarter: 2023Q4

REPORT INFORMATION
  Report Type: Report from Study
  Country: US (occurrence: US)
  Receive Date: 20231116
  Receipt Date: 20231124
  Transmission Date: 20240110
  Serious: Yes (Hospitalization)
  Sender: FDA-Public Use
  Company Number: US-TEVA-2023-US-2944151

PATIENT
  Age: 9 Year
  Sex: Male

DRUGS (32)
  1. ATOMOXETINE [Suspect]
     Active Substance: ATOMOXETINE
     Indication: Disruptive mood dysregulation disorder
     Dosage: 40 MILLIGRAM DAILY; ONCE EVERY MORNING
     Route: 065
  2. ATOMOXETINE [Suspect]
     Active Substance: ATOMOXETINE
     Indication: Attention deficit hyperactivity disorder
     Route: 065
  3. ATOMOXETINE [Suspect]
     Active Substance: ATOMOXETINE
     Indication: Major depression
  4. ATOMOXETINE [Suspect]
     Active Substance: ATOMOXETINE
     Indication: Psychotic symptom
  5. LAMOTRIGINE [Suspect]
     Active Substance: LAMOTRIGINE
     Indication: Disruptive mood dysregulation disorder
     Route: 065
  6. LAMOTRIGINE [Suspect]
     Active Substance: LAMOTRIGINE
     Indication: Attention deficit hyperactivity disorder
  7. LAMOTRIGINE [Suspect]
     Active Substance: LAMOTRIGINE
     Indication: Major depression
  8. LAMOTRIGINE [Suspect]
     Active Substance: LAMOTRIGINE
     Indication: Psychotic symptom
  9. ARIPIPRAZOLE [Suspect]
     Active Substance: ARIPIPRAZOLE
     Indication: Disruptive mood dysregulation disorder
     Dosage: INITIAL DOSE NOT STATED
     Route: 065
  10. ARIPIPRAZOLE [Suspect]
     Active Substance: ARIPIPRAZOLE
     Indication: Attention deficit hyperactivity disorder
     Dosage: 2.5 MILLIGRAM DAILY; EVERY EVENING
     Route: 065
  11. ARIPIPRAZOLE [Suspect]
     Active Substance: ARIPIPRAZOLE
     Indication: Major depression
     Dosage: 10 MILLIGRAM DAILY;
     Route: 065
  12. ARIPIPRAZOLE [Suspect]
     Active Substance: ARIPIPRAZOLE
     Indication: Psychotic symptom
     Dosage: 20 MILLIGRAM DAILY;
     Route: 065
  13. RISPERIDONE [Suspect]
     Active Substance: RISPERIDONE
     Indication: Disruptive mood dysregulation disorder
     Dosage: .25 MILLIGRAM DAILY; EVERY EVENING
     Route: 065
  14. RISPERIDONE [Suspect]
     Active Substance: RISPERIDONE
     Indication: Major depression
  15. RISPERIDONE [Suspect]
     Active Substance: RISPERIDONE
     Indication: Psychotic symptom
  16. RISPERIDONE [Suspect]
     Active Substance: RISPERIDONE
     Indication: Attention deficit hyperactivity disorder
  17. CITALOPRAM [Concomitant]
     Active Substance: CITALOPRAM HYDROBROMIDE
     Indication: Disruptive mood dysregulation disorder
     Dosage: 5 MILLIGRAM DAILY; ONCE EVERY MORNING
     Route: 065
  18. CITALOPRAM [Concomitant]
     Active Substance: CITALOPRAM HYDROBROMIDE
     Indication: Attention deficit hyperactivity disorder
     Route: 065
  19. CITALOPRAM [Concomitant]
     Active Substance: CITALOPRAM HYDROBROMIDE
     Indication: Major depression
  20. CITALOPRAM [Concomitant]
     Active Substance: CITALOPRAM HYDROBROMIDE
     Indication: Psychotic symptom
  21. GUANFACINE [Concomitant]
     Active Substance: GUANFACINE
     Indication: Disruptive mood dysregulation disorder
     Dosage: 3 MILLIGRAM DAILY; EVERY EVENING, EXTENDED-RELEASE
     Route: 065
  22. GUANFACINE [Concomitant]
     Active Substance: GUANFACINE
     Indication: Attention deficit hyperactivity disorder
  23. GUANFACINE [Concomitant]
     Active Substance: GUANFACINE
     Indication: Major depression
  24. GUANFACINE [Concomitant]
     Active Substance: GUANFACINE
     Indication: Psychotic symptom
  25. MELATONIN [Concomitant]
     Active Substance: MELATONIN
     Indication: Disruptive mood dysregulation disorder
     Dosage: 5 MILLIGRAM DAILY; EVERY EVENING
     Route: 065
  26. MELATONIN [Concomitant]
     Active Substance: MELATONIN
     Indication: Attention deficit hyperactivity disorder
  27. MELATONIN [Concomitant]
     Active Substance: MELATONIN
     Indication: Major depression
  28. MELATONIN [Concomitant]
     Active Substance: MELATONIN
     Indication: Psychotic symptom
  29. Divalproex-sodium [Concomitant]
     Indication: Disruptive mood dysregulation disorder
     Dosage: 125 MILLIGRAM DAILY; INITIALLY GIVEN EVERY MORNING AND LATER EVERY AFTERNOON
     Route: 065
  30. Divalproex-sodium [Concomitant]
     Indication: Attention deficit hyperactivity disorder
     Dosage: DOSE WAS INCREASED LATER
     Route: 065
  31. Divalproex-sodium [Concomitant]
     Indication: Major depression
  32. Divalproex-sodium [Concomitant]
     Indication: Psychotic symptom

REACTIONS (2)
  - Blood triglycerides increased [Unknown]
  - Drug ineffective [Unknown]
